FAERS Safety Report 5405295-3 (Version None)
Quarter: 2007Q3

REPORT INFORMATION
  Report Type: 
  Country: None (occurrence: None)
  Receive Date: 20070803
  Receipt Date: 20070727
  Transmission Date: 20080115
  Serious: Yes (Life-Threatening)
  Sender: FDA-Public Use
  Company Number: B0478428A

PATIENT
  Age: 68 Year
  Sex: Female
  Weight: 58 kg

DRUGS (9)
  1. SERETIDE [Suspect]
     Indication: ASTHMA
     Dosage: 100MCG TWICE PER DAY
     Route: 055
     Dates: start: 20070612, end: 20070612
  2. SPIROPENT [Concomitant]
     Indication: ASTHMA
     Route: 048
  3. ZADITEN [Concomitant]
     Indication: ASTHMA
     Dosage: 2MG PER DAY
     Route: 048
  4. THEOLONG [Concomitant]
     Indication: ASTHMA
     Dosage: 400MG PER DAY
     Route: 048
  5. FAMOTIDINE [Concomitant]
     Indication: GASTRITIS
     Dosage: 10MG PER DAY
     Route: 048
  6. PRAVASTATIN [Concomitant]
     Indication: HYPERLIPIDAEMIA
     Dosage: 10MG PER DAY
     Route: 048
  7. ANTOBRON [Concomitant]
     Indication: ASTHMA
     Route: 048
  8. DEPAS [Concomitant]
     Indication: ANXIETY DISORDER
     Dosage: 1MG PER DAY
     Route: 048
  9. QVAR 40 [Concomitant]
     Indication: ASTHMA
     Dosage: 400MCG PER DAY
     Route: 055

REACTIONS (4)
  - ANAPHYLACTIC SHOCK [None]
  - DYSPNOEA [None]
  - LOSS OF CONSCIOUSNESS [None]
  - WHEEZING [None]
